FAERS Safety Report 9171166 (Version 1)
Quarter: 2013Q1

REPORT INFORMATION
  Report Type: Spontaneous
  Country: JP (occurrence: JP)
  Receive Date: 20130319
  Receipt Date: 20130319
  Transmission Date: 20140127
  Serious: Yes (Death)
  Sender: FDA-Public Use
  Company Number: JP-009507513-1303JPN007963

PATIENT
  Age: 2 Month
  Sex: Male

DRUGS (4)
  1. DIAZOXIDE [Suspect]
     Indication: HYPOGLYCAEMIA
     Dosage: THE DAILY DOSE WAS 20 MG, ON 04-JAN GAVE 1/3 TWICE AND ON 06-JAN GAVE 1/3 ONCE
     Route: 048
     Dates: start: 20130104, end: 20130106
  2. DIAZOXIDE [Suspect]
     Dosage: THE DAILY DOSE WAS 10 MG, ON 06-JAN GAVE 1/3 TWICE, AND ON 07-JAN GAVE 1/3 ONCE
     Route: 048
     Dates: start: 20130106, end: 20130107
  3. LASIX (FUROSEMIDE) [Concomitant]
     Indication: PULMONARY ARTERY ATRESIA
     Dosage: UNK
     Route: 048
     Dates: start: 201211, end: 20130107
  4. ALDACTONE A [Concomitant]
     Indication: PULMONARY ARTERY ATRESIA
     Dosage: UNK
     Dates: start: 201211, end: 20130107

REACTIONS (2)
  - Death [Fatal]
  - Cardiac failure [Unknown]
